FAERS Safety Report 22362044 (Version 1)
Quarter: 2023Q2

REPORT INFORMATION
  Report Type: Spontaneous
  Country: CR (occurrence: CR)
  Receive Date: 20230524
  Receipt Date: 20230524
  Transmission Date: 20230722
  Serious: Yes (Other)
  Sender: FDA-Public Use
  Company Number: CR-PFIZER INC-PV202300090041

PATIENT
  Age: 83 Year
  Sex: Female

DRUGS (1)
  1. SUTENT [Suspect]
     Active Substance: SUNITINIB MALATE
     Dosage: ONE WEEK TAKE THE MEDICINE AND ANOTHER WEEK REST (ONE DAILY DOSE)
     Dates: end: 202305

REACTIONS (16)
  - Fracture [Unknown]
  - Muscular weakness [Unknown]
  - Mobility decreased [Unknown]
  - Somnolence [Unknown]
  - Blood glucose decreased [Unknown]
  - Hypertension [Unknown]
  - Fatigue [Unknown]
  - Insomnia [Unknown]
  - Ear pain [Unknown]
  - Oral pain [Unknown]
  - Gingival pain [Unknown]
  - Toothache [Unknown]
  - Loose tooth [Unknown]
  - Confusional state [Unknown]
  - Malaise [Unknown]
  - Off label use [Unknown]

NARRATIVE: CASE EVENT DATE: 20230401
